FAERS Safety Report 5290905-4 (Version None)
Quarter: 2007Q2

REPORT INFORMATION
  Report Type: 
  Country: None (occurrence: None)
  Receive Date: 20070405
  Receipt Date: 20070405
  Transmission Date: 20071010
  Serious: Yes (Other)
  Sender: FDA-Public Use
  Company Number: None

PATIENT
  Age: 42 Year
  Sex: Female
  Weight: 77.1115 kg

DRUGS (1)
  1. SPIRONOLACTONE [Suspect]
     Indication: ACNE CYSTIC
     Dosage: 100 MG AM, 50 MG PM   2X DAILY  PO
     Route: 048
     Dates: start: 20061229, end: 20070404

REACTIONS (7)
  - ABDOMINAL PAIN UPPER [None]
  - CHILLS [None]
  - DIARRHOEA [None]
  - EPISTAXIS [None]
  - HEADACHE [None]
  - PYREXIA [None]
  - VOMITING [None]
